FAERS Safety Report 6687016 (Version 10)
Quarter: 2013Q2

REPORT INFORMATION
  Report Type: Report from Study
  Country: DK (occurrence: DK)
  Receive Date: 20080630
  Receipt Date: 20130411
  Transmission Date: 20140414
  Serious: Yes (Other)
  Sender: FDA-Public Use
  Company Number: DK-ROCHE-GNE263344

PATIENT
  Age: 79 Year
  Sex: Female

DRUGS (8)
  1. RANIBIZUMAB [Suspect]
     Indication: AGE-RELATED MACULAR DEGENERATION
     Route: 050
     Dates: start: 20070917, end: 20070917
  2. RANIBIZUMAB [Suspect]
     Indication: CHOROIDAL NEOVASCULARISATION
     Route: 050
     Dates: start: 20071018, end: 20071018
  3. RANIBIZUMAB [Suspect]
     Route: 050
     Dates: start: 20071120, end: 20071120
  4. RANIBIZUMAB [Suspect]
     Route: 050
     Dates: start: 20080118, end: 20080118
  5. RANIBIZUMAB [Suspect]
     Route: 050
     Dates: start: 20080414, end: 20080414
  6. RANIBIZUMAB [Suspect]
     Dosage: LAST DOSE AT 13 JUN 2008 PRIOR TO AE
     Route: 050
     Dates: start: 20080613, end: 20080613
  7. RANIBIZUMAB [Suspect]
     Route: 050
  8. VERTEPORFIN [Suspect]
     Indication: AGE-RELATED MACULAR DEGENERATION
     Route: 065
     Dates: start: 20070917, end: 20080613

REACTIONS (2)
  - Retinal oedema [Recovered/Resolved with Sequelae]
  - Visual impairment [Unknown]
